FAERS Safety Report 8830253 (Version 1)
Quarter: 2012Q4

REPORT INFORMATION
  Report Type: 
  Country: US (occurrence: US)
  Receive Date: 20121008
  Receipt Date: 20121008
  Transmission Date: 20130627
  Serious: No
  Sender: FDA-Public Use
  Company Number: US-VERTEX PHARMACEUTICAL INC.-2012-021587

PATIENT
  Sex: Male

DRUGS (5)
  1. KALYDECO [Suspect]
     Indication: CYSTIC FIBROSIS
     Dosage: 150 mg, bid
     Dates: start: 201202
  2. TOBI                               /00304201/ [Concomitant]
  3. CREON [Concomitant]
  4. PULMOZYME [Concomitant]
  5. HYPERTONIC SALINE SOLUTION [Concomitant]

REACTIONS (3)
  - Vomiting [Not Recovered/Not Resolved]
  - Infective pulmonary exacerbation of cystic fibrosis [Not Recovered/Not Resolved]
  - Diarrhoea [Not Recovered/Not Resolved]
